FAERS Safety Report 6554669-6 (Version None)
Quarter: 2010Q1

REPORT INFORMATION
  Report Type: 
  Country: None (occurrence: None)
  Receive Date: 20100127
  Receipt Date: 20091222
  Transmission Date: 20100710
  Serious: Yes (Other)
  Sender: FDA-Public Use
  Company Number: GB-PFIZER INC-2009310462

PATIENT
  Age: 70 Year
  Sex: Female

DRUGS (13)
  1. BLINDED *PLACEBO [Suspect]
     Indication: RHEUMATOID ARTHRITIS
     Dosage: UNK
     Dates: start: 20090428
  2. BLINDED ATORVASTATIN CALCIUM [Suspect]
     Indication: RHEUMATOID ARTHRITIS
     Dosage: UNK
     Dates: start: 20090428
  3. BLINDED *PLACEBO [Suspect]
     Indication: CARDIOVASCULAR EVENT PROPHYLAXIS
  4. BLINDED ATORVASTATIN CALCIUM [Suspect]
     Indication: CARDIOVASCULAR EVENT PROPHYLAXIS
  5. PREDNISOLONE [Concomitant]
     Dosage: 7.5 MG, DAILY
     Dates: start: 20090123
  6. TRAMADOL HYDROCHLORIDE [Concomitant]
     Dosage: 50 MG, 4X/DAY
  7. FENTANYL [Concomitant]
     Dosage: 100 UG, EVERY 72 HOURS
  8. AMITRIPTYLINE [Concomitant]
     Dosage: 10 MG, 2X/DAY AT NIGHT
  9. PARACETAMOL [Concomitant]
     Dosage: 500 MG, 4X/DAY
  10. LANSOPRAZOLE [Concomitant]
     Dosage: 30 MG, 2X/DAY
  11. LACTULOSE [Concomitant]
     Dosage: 3.35 G, 2X/DAY
  12. FORTISIP [Concomitant]
     Dosage: 200 ML, 1X/DAY
  13. ADCAL-D3 [Concomitant]
     Dosage: 1 UNK, 2X/DAY

REACTIONS (1)
  - SKIN ULCER [None]
